FAERS Safety Report 21997165 (Version 1)
Quarter: 2023Q1

REPORT INFORMATION
  Report Type: Spontaneous
  Country: US (occurrence: US)
  Receive Date: 20230216
  Receipt Date: 20230216
  Transmission Date: 20230417
  Serious: No
  Sender: FDA-Public Use
  Company Number: US-ELI_LILLY_AND_COMPANY-US202302005860

PATIENT
  Age: 73 Year
  Sex: Female

DRUGS (2)
  1. MOUNJARO [Suspect]
     Active Substance: TIRZEPATIDE
     Indication: Diabetes mellitus
     Dosage: 5 MG, UNKNOWN
     Route: 058
     Dates: start: 20230103
  2. LEVOTHYROXINE [Concomitant]
     Active Substance: LEVOTHYROXINE
     Indication: Product used for unknown indication

REACTIONS (3)
  - Dizziness [Unknown]
  - Feeling jittery [Unknown]
  - Eye pain [Unknown]

NARRATIVE: CASE EVENT DATE: 20230103
